FAERS Safety Report 10450059 (Version 1)
Quarter: 2014Q3

REPORT INFORMATION
  Report Type: Spontaneous
  Country: US (occurrence: US)
  Receive Date: 20140912
  Receipt Date: 20140912
  Transmission Date: 20150326
  Serious: No
  Sender: FDA-Public Use
  Company Number: US-ELI_LILLY_AND_COMPANY-US201408005011

PATIENT
  Age: 66 Year
  Sex: Male

DRUGS (2)
  1. CIALIS [Suspect]
     Active Substance: TADALAFIL
     Indication: PROSTATECTOMY
     Dosage: 5 MG, UNK
     Route: 065
     Dates: start: 20140324
  2. CIALIS [Suspect]
     Active Substance: TADALAFIL
     Indication: CARDIOVASCULAR DISORDER

REACTIONS (3)
  - Drug ineffective [Recovering/Resolving]
  - Gastric disorder [Recovering/Resolving]
  - Nausea [Recovering/Resolving]
